FAERS Safety Report 23601518 (Version 1)
Quarter: 2024Q1

REPORT INFORMATION
  Report Type: Spontaneous
  Country: US (occurrence: None)
  Receive Date: 20240306
  Receipt Date: 20240306
  Transmission Date: 20240410
  Serious: No
  Sender: FDA-Public Use
  Company Number: None

PATIENT
  Age: 68 Year
  Sex: Female

DRUGS (1)
  1. INGREZZA [Suspect]
     Active Substance: VALBENAZINE
     Indication: Tardive dyskinesia
     Dosage: FREQUENCY : DAILY;?
     Route: 048
     Dates: start: 20240221, end: 20240229

REACTIONS (7)
  - Somnolence [None]
  - Irritability [None]
  - Brain fog [None]
  - Memory impairment [None]
  - Tardive dyskinesia [None]
  - Condition aggravated [None]
  - Therapy interrupted [None]
